FAERS Safety Report 20411534 (Version 5)
Quarter: 2022Q1

REPORT INFORMATION
  Report Type: Spontaneous
  Country: JP (occurrence: JP)
  Receive Date: 20220201
  Receipt Date: 20220316
  Transmission Date: 20220424
  Serious: Yes (Other)
  Sender: FDA-Public Use
  Company Number: JP-ONO-2022JP002311

PATIENT
  Age: 70 Year
  Sex: Female

DRUGS (12)
  1. MEKTOVI [Suspect]
     Active Substance: BINIMETINIB
     Indication: Colon cancer
     Dosage: 90 MG, EVERYDAY
     Route: 048
     Dates: start: 20210201, end: 20210314
  2. MEKTOVI [Suspect]
     Active Substance: BINIMETINIB
     Dosage: 60 MG, EVERYDAY
     Route: 048
     Dates: start: 20210315, end: 20210424
  3. BRAFTOVI [Suspect]
     Active Substance: ENCORAFENIB
     Indication: Colon cancer
     Dosage: 300 MG, EVERYDAY
     Route: 048
     Dates: start: 20210201, end: 20210314
  4. BRAFTOVI [Suspect]
     Active Substance: ENCORAFENIB
     Dosage: 225 MG, EVERYDAY
     Route: 048
     Dates: start: 20210315, end: 20210424
  5. ERBITUX [Concomitant]
     Active Substance: CETUXIMAB
     Indication: Colon cancer
     Dosage: UNK, QW
     Route: 065
     Dates: start: 20210201, end: 20210222
  6. ERBITUX [Concomitant]
     Active Substance: CETUXIMAB
     Dosage: UNK, Q2W
     Route: 065
     Dates: start: 20210301, end: 20210426
  7. IRINOTEL [IRINOTECAN MONOHYDROCHLORIDE TRIHYDRATE] [Concomitant]
     Indication: Colon cancer
     Dosage: UNK
     Route: 065
     Dates: start: 20210430, end: 20210430
  8. IRINOTEL [IRINOTECAN MONOHYDROCHLORIDE TRIHYDRATE] [Concomitant]
     Dosage: UNK
     Route: 065
     Dates: start: 20210514, end: 20210514
  9. LEVOLEUCOVORIN CALCIUM [Concomitant]
     Active Substance: LEVOLEUCOVORIN CALCIUM
     Indication: Colon cancer
     Dosage: UNK
     Route: 065
     Dates: start: 20210430, end: 20210430
  10. LEVOLEUCOVORIN CALCIUM [Concomitant]
     Active Substance: LEVOLEUCOVORIN CALCIUM
     Dosage: UNK
     Route: 065
     Dates: start: 20210514, end: 20210514
  11. FLUOROURACIL [Concomitant]
     Active Substance: FLUOROURACIL
     Indication: Colon cancer
     Dosage: UNK
     Route: 065
     Dates: start: 20210430, end: 20210430
  12. FLUOROURACIL [Concomitant]
     Active Substance: FLUOROURACIL
     Dosage: UNK
     Route: 065
     Dates: start: 20210514, end: 20210514

REACTIONS (5)
  - Serous retinal detachment [Recovered/Resolved]
  - Nutritional condition abnormal [Recovered/Resolved]
  - Physical deconditioning [Recovered/Resolved]
  - Malaise [Recovered/Resolved]
  - Decreased appetite [Recovered/Resolved]

NARRATIVE: CASE EVENT DATE: 20210202
